FAERS Safety Report 11329956 (Version 1)
Quarter: 2015Q3

REPORT INFORMATION
  Report Type: Spontaneous
  Country: US (occurrence: None)
  Receive Date: 20150730
  Receipt Date: 20150730
  Transmission Date: 20151125
  Serious: Yes (Disabling)
  Sender: FDA-Public Use
  Company Number: None

PATIENT
  Age: 60 Year
  Sex: Female

DRUGS (6)
  1. VITAMIN D [Concomitant]
     Active Substance: CHOLECALCIFEROL
  2. CALCIUM [Concomitant]
     Active Substance: CALCIUM
  3. ZOLEDRONIC [Suspect]
     Active Substance: ZOLEDRONIC ACID
     Indication: OSTEOPOROSIS
     Dosage: YEARLY, INTO A VEIN?
     Dates: start: 20150714
  4. MAGNESIUM [Concomitant]
     Active Substance: MAGNESIUM
  5. NATURE-THROID [Concomitant]
     Active Substance: THYROID, PORCINE
  6. SELENIUM [Concomitant]
     Active Substance: SELENIUM

REACTIONS (13)
  - Chest pain [None]
  - Asthenia [None]
  - Bone pain [None]
  - Urine output decreased [None]
  - Palpitations [None]
  - Arthralgia [None]
  - Pyrexia [None]
  - Abdominal pain [None]
  - Headache [None]
  - Tachycardia [None]
  - Dyspnoea [None]
  - Chills [None]
  - Tinnitus [None]

NARRATIVE: CASE EVENT DATE: 20150714
